FAERS Safety Report 8125060-6 (Version None)
Quarter: 2012Q1

REPORT INFORMATION
  Report Type: 
  Country: None (occurrence: None)
  Receive Date: 20120209
  Receipt Date: 20120131
  Transmission Date: 20120608
  Serious: Yes (Death, Other)
  Sender: FDA-Public Use
  Company Number: US-BAXTER-2012BH003032

PATIENT
  Age: 70 Year
  Sex: Female

DRUGS (2)
  1. ARALAST NP [Suspect]
     Indication: ALPHA-1 ANTI-TRYPSIN DEFICIENCY
     Route: 042
     Dates: start: 20120109, end: 20120109
  2. ARALAST NP [Suspect]
     Route: 042

REACTIONS (2)
  - EMPHYSEMA [None]
  - OXYGEN SATURATION DECREASED [None]
